FAERS Safety Report 5050668-4 (Version None)
Quarter: 2006Q3

REPORT INFORMATION
  Report Type: 
  Country: None (occurrence: None)
  Receive Date: 20060710
  Receipt Date: 20060627
  Transmission Date: 20061208
  Serious: Yes (Hospitalization, Other)
  Sender: FDA-Public Use
  Company Number: 2006068739

PATIENT
  Age: 68 Year
  Sex: Male

DRUGS (2)
  1. EPELIN KAPSEALS  (PHENYTOIN SODIUM) [Suspect]
     Indication: EPILEPSY
     Dosage: 200 MG (100 MG, 2 IN 1 D), ORAL
     Route: 048
     Dates: start: 19960101
  2. ARDENALE (PHENOBARBITAL SODIUM) [Concomitant]

REACTIONS (3)
  - CHOLELITHIASIS [None]
  - CONVULSION [None]
  - DRUG DEPENDENCE [None]
